FAERS Safety Report 7822048 (Version 2)
Quarter: 2013Q4

REPORT INFORMATION
  Report Type: Spontaneous
  Country: US (occurrence: US)
  Receive Date: 20110222
  Receipt Date: 20131016
  Transmission Date: 20140711
  Serious: Yes (Other)
  Sender: FDA-Public Use
  Company Number: US-ROCHE-735371

PATIENT
  Age: 25 Year
  Sex: Male
  Weight: 54.4 kg

DRUGS (2)
  1. ACCUTANE [Suspect]
     Indication: ACNE
     Route: 065
     Dates: start: 20010101, end: 20010301
  2. ACCUTANE [Suspect]
     Route: 065
     Dates: start: 200205, end: 200208

REACTIONS (6)
  - Crohn^s disease [Unknown]
  - Gastrointestinal injury [Unknown]
  - Inflammatory bowel disease [Unknown]
  - Colitis ulcerative [Unknown]
  - Intestinal obstruction [Unknown]
  - Depression [Unknown]
